FAERS Safety Report 18100008 (Version 4)
Quarter: 2023Q1

REPORT INFORMATION
  Report Type: Spontaneous
  Country: US (occurrence: US)
  Receive Date: 20200731
  Receipt Date: 20230331
  Transmission Date: 20230417
  Serious: Yes (Hospitalization, Other)
  Sender: FDA-Public Use
  Company Number: US-009507513-2001USA000578

PATIENT
  Sex: Male

DRUGS (5)
  1. ZOSTAVAX [Suspect]
     Active Substance: VARICELLA-ZOSTER VIRUS STRAIN OKA/MERCK LIVE ANTIGEN
     Indication: Routine health maintenance
     Route: 058
     Dates: start: 20150901
  2. ZOSTAVAX [Suspect]
     Active Substance: VARICELLA-ZOSTER VIRUS STRAIN OKA/MERCK LIVE ANTIGEN
     Indication: Prophylaxis
  3. STERILE DILUENT (WATER) [Suspect]
     Active Substance: WATER
     Dosage: UNK
     Dates: start: 20150901
  4. ALLOPURINOL [Concomitant]
     Active Substance: ALLOPURINOL
     Indication: Gout
     Dosage: 300 MILLIGRAM
     Dates: start: 2014
  5. INFLUENZA VIRUS VACCINE [Concomitant]
     Active Substance: INFLUENZA VIRUS VACCINE
     Dosage: UNK
     Route: 065
     Dates: start: 20150901

REACTIONS (17)
  - Amaurosis fugax [Recovered/Resolved]
  - Cerebrovascular accident [Recovering/Resolving]
  - Dysmetria [Unknown]
  - Glaucoma [Unknown]
  - Acquired mixed hyperlipidaemia [Unknown]
  - Dry eye [Unknown]
  - Glucose tolerance impaired [Unknown]
  - Ataxia [Unknown]
  - Cardiac disorder [Unknown]
  - Hypertension [Unknown]
  - Obesity [Unknown]
  - Ear infection [Unknown]
  - Cerumen impaction [Unknown]
  - Presbyopia [Unknown]
  - Hypermetropia [Unknown]
  - Astigmatism [Unknown]
  - Skin laceration [Unknown]

NARRATIVE: CASE EVENT DATE: 20151019
